FAERS Safety Report 7313883-2 (Version None)
Quarter: 2011Q1

REPORT INFORMATION
  Report Type: 
  Country: None (occurrence: None)
  Receive Date: 20110217
  Receipt Date: 20110217
  Transmission Date: 20110831
  Serious: Yes (Hospitalization)
  Sender: FDA-Public Use
  Company Number: None

PATIENT
  Age: 67 Year
  Sex: Female
  Weight: 71 kg

DRUGS (1)
  1. HUMAN SYNTHETIC SECRETIN 14.2 MCG CHIRHOCLIN [Suspect]
     Indication: PANCREATIC DISORDER
     Dosage: 14.2 MCG X 1 IV
     Route: 042
     Dates: start: 20100524

REACTIONS (1)
  - PNEUMONIA ASPIRATION [None]
